FAERS Safety Report 8710344 (Version 2)
Quarter: 2013Q4

REPORT INFORMATION
  Report Type: Report from Study
  Country: US (occurrence: US)
  Receive Date: 20120807
  Receipt Date: 20131031
  Transmission Date: 20140711
  Serious: Yes (Death, Other)
  Sender: FDA-Public Use
  Company Number: US-009507513-1205USA04633

PATIENT
  Age: 62 Year
  Sex: Female

DRUGS (4)
  1. VORINOSTAT [Suspect]
     Indication: ACUTE MYELOID LEUKAEMIA
     Dosage: 400 MG, QD
     Route: 048
     Dates: start: 20120427, end: 20120510
  2. VORINOSTAT [Suspect]
     Dosage: 400 MG, QD
     Route: 048
     Dates: start: 20120518, end: 20120520
  3. VELCADE [Suspect]
     Indication: ACUTE MYELOID LEUKAEMIA
     Dosage: 2025 MG, QD
     Route: 058
     Dates: start: 20120427, end: 20120521
  4. ZOFRAN [Concomitant]

REACTIONS (1)
  - Cardio-respiratory arrest [Fatal]
